FAERS Safety Report 6557848-7 (Version None)
Quarter: 2010Q1

REPORT INFORMATION
  Report Type: 
  Country: None (occurrence: None)
  Receive Date: 20100129
  Receipt Date: 20091021
  Transmission Date: 20100710
  Serious: No
  Sender: FDA-Public Use
  Company Number: US-BAUSCH-2009BL005316

PATIENT
  Age: 72 Year
  Sex: Male

DRUGS (5)
  1. TOBRAMYCIN AND DEXAMETHASONE OPHTHALMIC SUSPENSION USP 0.3%/0.1% [Suspect]
     Indication: EAR INFECTION
     Route: 001
     Dates: start: 20091005, end: 20091015
  2. TOBRAMYCIN AND DEXAMETHASONE OPHTHALMIC SUSPENSION USP 0.3%/0.1% [Suspect]
     Indication: OFF LABEL USE
     Route: 001
     Dates: start: 20091005, end: 20091015
  3. TOBRAMYCIN AND DEXAMETHASONE OPHTHALMIC SUSPENSION USP 0.3%/0.1% [Suspect]
     Route: 001
     Dates: start: 20091019
  4. TOBRAMYCIN AND DEXAMETHASONE OPHTHALMIC SUSPENSION USP 0.3%/0.1% [Suspect]
     Route: 001
     Dates: start: 20091019
  5. NEOMYCIN AND POLYMXIN B SULFATES AND HYDROCORTISONE [Concomitant]
     Indication: POSTOPERATIVE CARE
     Route: 001
     Dates: start: 20080101, end: 20091019

REACTIONS (1)
  - RASH [None]
